FAERS Safety Report 9129016 (Version 1)
Quarter: 2013Q1

REPORT INFORMATION
  Report Type: Spontaneous
  Country: BE (occurrence: BE)
  Receive Date: 20130228
  Receipt Date: 20130228
  Transmission Date: 20140127
  Serious: Yes (Disabling)
  Sender: FDA-Public Use
  Company Number: BE-B.I. PHARMACEUTICALS,INC./RIDGEFIELD-2012-BL-00488BL

PATIENT
  Age: 85 Year
  Sex: Female
  Weight: 80 kg

DRUGS (9)
  1. PRADAXA [Suspect]
     Indication: ATRIAL FIBRILLATION
     Dosage: 220 MG
     Route: 048
     Dates: start: 20120802, end: 20120816
  2. PRADAXA [Suspect]
     Dosage: 110 MG
     Route: 048
     Dates: start: 20120913, end: 20121114
  3. PRADAXA [Suspect]
     Dosage: 220 MG
     Route: 048
     Dates: start: 20121115
  4. ASAFLOW [Concomitant]
     Dosage: 160 MG
  5. DOVOBET [Concomitant]
     Indication: PSORIASIS
  6. EMCONCOR MINOR [Concomitant]
     Dosage: 2.5 MG
  7. FUROSEMIDE [Concomitant]
     Dosage: 40 MG
  8. L-THYROXINE [Concomitant]
     Dosage: 25 MG
  9. STEOVIT D3 [Concomitant]
     Dosage: 800 UNITS

REACTIONS (3)
  - Psoriasis [Recovered/Resolved]
  - Pruritus generalised [Recovered/Resolved]
  - Pruritus [Not Recovered/Not Resolved]
